FAERS Safety Report 6356394-3 (Version None)
Quarter: 2009Q3

REPORT INFORMATION
  Report Type: 
  Country: None (occurrence: None)
  Receive Date: 20090914
  Receipt Date: 20090914
  Transmission Date: 20100115
  Serious: No
  Sender: FDA-Public Use
  Company Number: None

PATIENT
  Age: 31 Year
  Sex: Male
  Weight: 90.7194 kg

DRUGS (1)
  1. ABILIFY [Suspect]
     Indication: PERSONALITY DISORDER
     Dosage: 1 DAILY PO
     Route: 048
     Dates: start: 20080104, end: 20080415

REACTIONS (1)
  - DYSKINESIA [None]
